FAERS Safety Report 4461112-X (Version None)
Quarter: 2004Q3

REPORT INFORMATION
  Report Type: 
  Country: None (occurrence: None)
  Receive Date: 20040923
  Receipt Date: 20040903
  Transmission Date: 20050211
  Serious: No
  Sender: FDA-Public Use
  Company Number: 2004SE03518

PATIENT
  Age: 71 Year
  Sex: Female
  Weight: 67 kg

DRUGS (7)
  1. SELOKEEN ZOC [Suspect]
     Indication: ARRHYTHMIA
     Dosage: 100 MG DAILY PO
     Route: 048
     Dates: start: 19940101
  2. SELOKEEN ZOC [Suspect]
     Indication: HYPERTENSION
     Dosage: 100 MG DAILY PO
     Route: 048
     Dates: start: 19940101
  3. SELOKEEN ZOC [Suspect]
     Indication: ARRHYTHMIA
     Dosage: 50 MG DAILY PO
     Route: 048
  4. SELOKEEN ZOC [Suspect]
     Indication: HYPERTENSION
     Dosage: 50 MG DAILY PO
     Route: 048
  5. TIMOPTIC [Suspect]
  6. PREDNISON FORTE [Concomitant]
  7. LIPITOR [Concomitant]

REACTIONS (1)
  - ERYTHEMA [None]
